FAERS Safety Report 16196868 (Version 3)
Quarter: 2019Q2

REPORT INFORMATION
  Report Type: Spontaneous
  Country: US (occurrence: US)
  Receive Date: 20190415
  Receipt Date: 20190530
  Transmission Date: 20190711
  Serious: Yes (Other)
  Sender: FDA-Public Use
  Company Number: US-TORRENT-00007966

PATIENT
  Age: 23 Year
  Sex: Female
  Weight: 40 kg

DRUGS (3)
  1. LEVETIRACETAM. [Suspect]
     Active Substance: LEVETIRACETAM
     Indication: SEIZURE
     Dates: start: 20190123
  2. KEPPRA [Concomitant]
     Active Substance: LEVETIRACETAM
     Indication: SEIZURE
     Dosage: FOR 10 YEARS
  3. VALIUM [Concomitant]
     Active Substance: DIAZEPAM
     Indication: SLEEP DISORDER
     Dosage: 1/2 OF A VALIUM?(UNKNOWN STRENGTH) UP TO 2 TIMES A MONTH

REACTIONS (3)
  - Seizure [Not Recovered/Not Resolved]
  - Product administration error [Unknown]
  - Product substitution issue [Unknown]

NARRATIVE: CASE EVENT DATE: 201901
